FAERS Safety Report 8552734 (Version 2)
Quarter: 2013Q2

REPORT INFORMATION
  Report Type: Spontaneous
  Country: US (occurrence: None)
  Receive Date: 20120327
  Receipt Date: 20120709
  Transmission Date: 20140414
  Serious: Yes (Other)
  Sender: FDA-Public Use
  Company Number: PHEH2009US02775

PATIENT
  Age: 62 Year
  Sex: Male

DRUGS (6)
  1. GLEEVEC [Suspect]
     Dates: start: 200811
  2. TOPROL XL [Concomitant]
  3. HYDROCHLOROTHIAZIDE [Concomitant]
  4. IRON [Concomitant]
  5. VITAMINS [Concomitant]
  6. ANTIHYPERTENSIVE DRUGS (NO INGREDIENTS/SUBSTANCES) [Concomitant]

REACTIONS (9)
  - DIARRHOEA [None]
  - EYE HAEMORRHAGE [None]
  - ASTHENIA [None]
  - BONE PAIN [None]
  - MUSCLE TIGHTNESS [None]
  - EYE SWELLING [None]
  - MUSCLE SPASMS [None]
  - NECK PAIN [None]
  - Spinal pain [None]
